FAERS Safety Report 9629446 (Version 4)
Quarter: 2014Q2

REPORT INFORMATION
  Report Type: Spontaneous
  Country: US (occurrence: US)
  Receive Date: 20131017
  Receipt Date: 20140521
  Transmission Date: 20141212
  Serious: Yes (Hospitalization, Other)
  Sender: FDA-Public Use
  Company Number: US-009507513-1310USA005567

PATIENT
  Sex: Female
  Weight: 99.32 kg

DRUGS (8)
  1. FOSAMAX [Suspect]
     Indication: OSTEOPOROSIS
     Dosage: 70 MG, UNK
     Route: 048
     Dates: start: 20030826, end: 20080715
  2. ALENDRONATE SODIUM [Suspect]
     Indication: OSTEOPOROSIS
     Dosage: 70 MG, QW
     Dates: start: 20080715, end: 20100927
  3. ASCORBIC ACID [Concomitant]
     Dosage: 500 MG, QD
     Dates: start: 200302
  4. VITAMIN D (UNSPECIFIED) [Concomitant]
     Dosage: 500 MG, QD
     Dates: start: 200302
  5. CENTRUM SILVER [Concomitant]
     Dosage: 1 DF, QD
     Dates: start: 200302
  6. OS-CAL + D [Concomitant]
     Dosage: 500 MG, BID
     Dates: start: 200302
  7. HORMONES (UNSPECIFIED) [Concomitant]
  8. GLYBURIDE [Concomitant]

REACTIONS (9)
  - Intramedullary rod insertion [Unknown]
  - Femur fracture [Recovered/Resolved]
  - Hypertension [Unknown]
  - Foot deformity [Unknown]
  - Arthritis [Unknown]
  - Benign neoplasm of spinal cord [Unknown]
  - Blood cholesterol increased [Unknown]
  - Back pain [Not Recovered/Not Resolved]
  - Gastrooesophageal reflux disease [Unknown]
